FAERS Safety Report 8111517-0 (Version None)
Quarter: 2012Q1

REPORT INFORMATION
  Report Type: 
  Country: None (occurrence: None)
  Receive Date: 20120203
  Receipt Date: 20120125
  Transmission Date: 20120608
  Serious: No
  Sender: FDA-Public Use
  Company Number: US-BAYER-2012-010116

PATIENT
  Sex: Male

DRUGS (4)
  1. CIALIS [Concomitant]
     Indication: ERECTILE DYSFUNCTION
  2. VIAGRA [Concomitant]
     Indication: ERECTILE DYSFUNCTION
  3. LEVITRA [Suspect]
     Indication: ERECTILE DYSFUNCTION
  4. CAVERJECT [Concomitant]
     Indication: ERECTILE DYSFUNCTION

REACTIONS (1)
  - ERECTILE DYSFUNCTION [None]
